FAERS Safety Report 8217031-6 (Version None)
Quarter: 2012Q1

REPORT INFORMATION
  Report Type: 
  Country: None (occurrence: None)
  Receive Date: 20120319
  Receipt Date: 20120308
  Transmission Date: 20120608
  Serious: No
  Sender: FDA-Public Use
  Company Number: US-BIOGENIDEC-2012BI008705

PATIENT
  Sex: Female

DRUGS (4)
  1. AVONEX [Suspect]
     Indication: MULTIPLE SCLEROSIS
     Route: 030
     Dates: start: 20120217, end: 20120217
  2. AVONEX [Suspect]
     Route: 030
     Dates: start: 20120224, end: 20120224
  3. AVONEX [Suspect]
     Route: 030
     Dates: start: 20120302
  4. AVONEX [Suspect]
     Route: 030

REACTIONS (6)
  - BLISTER [None]
  - AGEUSIA [None]
  - GLOSSITIS [None]
  - DYSGEUSIA [None]
  - HERPES ZOSTER [None]
  - GINGIVITIS [None]
